FAERS Safety Report 5841803-6 (Version None)
Quarter: 2008Q3

REPORT INFORMATION
  Report Type: 
  Country: None (occurrence: None)
  Receive Date: 20080812
  Receipt Date: 20080806
  Transmission Date: 20090109
  Serious: Yes (Hospitalization)
  Sender: FDA-Public Use
  Company Number: A0741382A

PATIENT
  Age: 33 Year
  Sex: Male

DRUGS (9)
  1. COREG CR [Suspect]
     Dosage: 40MG PER DAY
     Route: 048
     Dates: start: 20070501, end: 20080501
  2. LAMICTAL [Suspect]
     Indication: EPILEPSY
     Dosage: 50MG TWICE PER DAY
     Route: 048
     Dates: start: 20080701
  3. LISINOPRIL [Concomitant]
  4. DIGOXIN [Concomitant]
  5. ALDACTONE [Concomitant]
  6. LASIX [Concomitant]
  7. ASPIRIN [Concomitant]
  8. VALIUM [Concomitant]
  9. ZONEGRAN [Concomitant]

REACTIONS (5)
  - CONVULSION [None]
  - EPILEPSY [None]
  - EUPHORIC MOOD [None]
  - HEART RATE IRREGULAR [None]
  - MOVEMENT DISORDER [None]
